FAERS Safety Report 25240135 (Version 1)
Quarter: 2025Q2

REPORT INFORMATION
  Report Type: Spontaneous
  Country: US (occurrence: None)
  Receive Date: 20250425
  Receipt Date: 20250425
  Transmission Date: 20250716
  Serious: No
  Sender: FDA-CTU
  Company Number: None

PATIENT
  Age: 77 Year
  Sex: Female

DRUGS (1)
  1. JAKAFI [Suspect]
     Active Substance: RUXOLITINIB
     Indication: White blood cell count decreased
     Dosage: 60 TABLETS TWICE A DAY ORAL
     Route: 048
     Dates: start: 20240802

REACTIONS (1)
  - Influenza [None]

NARRATIVE: CASE EVENT DATE: 20250425
